FAERS Safety Report 6936653-3 (Version None)
Quarter: 2010Q3

REPORT INFORMATION
  Report Type: 
  Country: None (occurrence: None)
  Receive Date: 20100823
  Receipt Date: 20100818
  Transmission Date: 20110219
  Serious: Yes (Hospitalization)
  Sender: FDA-Public Use
  Company Number: CH-ROCHE-721901

PATIENT
  Age: 80 Year
  Sex: Male

DRUGS (21)
  1. ROCEPHIN [Suspect]
     Indication: PNEUMONIA
     Route: 040
     Dates: start: 20100402, end: 20100412
  2. LAMICTAL [Suspect]
     Route: 048
     Dates: start: 20091101
  3. LAMICTAL [Suspect]
     Route: 048
     Dates: start: 20100402, end: 20100414
  4. ASPIRIN [Suspect]
     Indication: ATRIAL FLUTTER
     Route: 048
     Dates: start: 20090101, end: 20100402
  5. ASPIRIN [Suspect]
     Route: 048
     Dates: start: 20100409, end: 20100414
  6. CONCOR [Concomitant]
     Route: 048
  7. APROVEL [Concomitant]
     Route: 048
     Dates: end: 20100402
  8. TOREM [Concomitant]
     Route: 048
  9. TOREM [Concomitant]
     Dosage: STRENGTH: 40 MG; DOSE INCREASED TEMPORARILY
     Route: 048
  10. ZYLORIC [Concomitant]
     Route: 048
  11. METOLAZON [Concomitant]
     Route: 048
     Dates: start: 20100405, end: 20100405
  12. ACETAMINOPHEN [Concomitant]
     Dosage: DAILY
     Route: 048
  13. URBANYL [Concomitant]
     Route: 048
     Dates: start: 20100403
  14. KLACID [Concomitant]
     Indication: PNEUMONIA
     Dosage: INTRAVENOUS DRIP
     Route: 050
     Dates: start: 20100402, end: 20100403
  15. KLACID [Concomitant]
     Dosage: ORAL
     Route: 050
     Dates: start: 20100419, end: 20100424
  16. PANTOPRAZOLE SODIUM [Concomitant]
     Dates: start: 20100403
  17. FRAGMIN [Concomitant]
     Route: 058
     Dates: start: 20100409, end: 20100419
  18. PERENTEROL [Concomitant]
     Route: 048
     Dates: start: 20100409, end: 20100422
  19. XYZAL [Concomitant]
     Route: 048
     Dates: start: 20100409, end: 20100422
  20. VALIUM [Concomitant]
  21. AMOXICILLIN [Concomitant]
     Indication: PNEUMONIA
     Route: 048
     Dates: start: 20100419, end: 20100424

REACTIONS (7)
  - EPISTAXIS [None]
  - GASTRIC ULCER [None]
  - GASTROINTESTINAL HAEMORRHAGE [None]
  - HAEMORRHAGIC ANAEMIA [None]
  - MELAENA [None]
  - PETECHIAE [None]
  - THROMBOCYTOPENIA [None]
